FAERS Safety Report 18543956 (Version 1)
Quarter: 2020Q4

REPORT INFORMATION
  Report Type: Spontaneous
  Country: TN (occurrence: TN)
  Receive Date: 20201124
  Receipt Date: 20201124
  Transmission Date: 20210114
  Serious: Yes (Hospitalization)
  Sender: FDA-Public Use
  Company Number: TN-BIOGEN-2020BI00946460

PATIENT
  Age: 39 Year
  Sex: Female
  Weight: 75 kg

DRUGS (1)
  1. TECFIDERA [Suspect]
     Active Substance: DIMETHYL FUMARATE
     Indication: MULTIPLE SCLEROSIS
     Route: 048
     Dates: start: 20201105

REACTIONS (8)
  - Pruritus [Unknown]
  - Papule [Unknown]
  - Diarrhoea [Unknown]
  - Tongue oedema [Unknown]
  - Swelling face [Recovered/Resolved]
  - Face oedema [Unknown]
  - Erythema [Recovered/Resolved]
  - Hot flush [Recovered/Resolved]

NARRATIVE: CASE EVENT DATE: 20201105
